FAERS Safety Report 9465456 (Version 1)
Quarter: 2013Q3

REPORT INFORMATION
  Report Type: Not Available
  Country: US (occurrence: US)
  Receive Date: 20130820
  Receipt Date: 20130820
  Transmission Date: 20140515
  Serious: Yes (Other)
  Sender: FDA-Public Use
  Company Number: US-LUPIN PHARMACEUTICALS INC.-E2B_00001161

PATIENT
  Age: 75 Year
  Sex: Female
  Weight: 81.72 kg

DRUGS (12)
  1. LEVOFLOXACIN TABLETS 500 MG [Suspect]
     Indication: BRONCHITIS
     Dates: start: 20130703, end: 20130710
  2. METOPROLOL [Concomitant]
     Indication: HYPERTENSION
  3. SOTALOL [Concomitant]
     Indication: ATRIAL FIBRILLATION
  4. ALPRAZOLAM [Concomitant]
     Indication: ANXIETY
     Dosage: 0.5MG THRICE A DAY AS NEEDED
  5. DIGOXIN [Concomitant]
     Indication: ATRIAL FIBRILLATION
  6. WARFARIN [Concomitant]
     Indication: ATRIAL FIBRILLATION
  7. WARFARIN [Concomitant]
     Indication: ATRIAL FIBRILLATION
  8. POTASSIUM CHLORIDE [Concomitant]
     Indication: BLOOD POTASSIUM DECREASED
  9. ATORVASTATIN [Concomitant]
     Indication: HYPERLIPIDAEMIA
  10. DIOVAN HCT [Concomitant]
     Indication: HYPERTENSION
     Dosage: 25 MG/160 MG
  11. LEVOTHYROXINE [Concomitant]
     Indication: HYPOTHYROIDISM
  12. ASPIRIN [Concomitant]
     Indication: CARDIOVASCULAR EVENT PROPHYLAXIS

REACTIONS (4)
  - Fall [Recovered/Resolved]
  - Face injury [Recovered/Resolved]
  - Injury [Recovered/Resolved]
  - Diarrhoea [Recovered/Resolved with Sequelae]
